FAERS Safety Report 23418160 (Version 1)
Quarter: 2024Q1

REPORT INFORMATION
  Report Type: Spontaneous
  Country: US (occurrence: US)
  Receive Date: 20240118
  Receipt Date: 20240118
  Transmission Date: 20240409
  Serious: No
  Sender: FDA-Public Use
  Company Number: ENDG23-04996

PATIENT
  Sex: Male

DRUGS (2)
  1. PERCOCET [Suspect]
     Active Substance: ACETAMINOPHEN\OXYCODONE HYDROCHLORIDE
     Indication: Pain
     Dosage: UNK UNKNOWN, UNKNOWN
     Route: 065
  2. CAPLYTA [Concomitant]
     Active Substance: LUMATEPERONE
     Indication: Bipolar disorder
     Dosage: 42 MG (TITER), OD (1X/DAY)
     Route: 048

REACTIONS (2)
  - Nightmare [Unknown]
  - Insomnia [Unknown]
